FAERS Safety Report 6826890-0 (Version None)
Quarter: 2010Q3

REPORT INFORMATION
  Report Type: 
  Country: None (occurrence: None)
  Receive Date: 20100709
  Receipt Date: 20100629
  Transmission Date: 20110219
  Serious: Yes (Hospitalization, Other)
  Sender: FDA-Public Use
  Company Number: CA-ELI_LILLY_AND_COMPANY-CA201006007637

PATIENT
  Age: 74 Year
  Sex: Female

DRUGS (4)
  1. FORTEO [Suspect]
     Indication: OSTEOPOROSIS
     Dosage: 20 UG, DAILY (1/D)
     Dates: start: 20100222
  2. AVALIDE [Concomitant]
  3. CALCIUM CARBONATE [Concomitant]
  4. TYLENOL (CAPLET) [Concomitant]

REACTIONS (2)
  - FALL [None]
  - FEMUR FRACTURE [None]
